FAERS Safety Report 5656679-X (Version None)
Quarter: 2008Q1

REPORT INFORMATION
  Report Type: 
  Country: None (occurrence: None)
  Receive Date: 20080310
  Receipt Date: 20080305
  Transmission Date: 20080703
  Serious: Yes (Other)
  Sender: FDA-Public Use
  Company Number: NL-WYE-G01210108

PATIENT
  Sex: Female

DRUGS (2)
  1. EFFEXOR XR [Suspect]
     Dosage: UNK
     Dates: start: 20071101, end: 20080101
  2. EFFEXOR XR [Suspect]
     Dates: start: 20080101

REACTIONS (4)
  - CONDITION AGGRAVATED [None]
  - DISTURBANCE IN ATTENTION [None]
  - EMOTIONAL DISORDER [None]
  - MULTIPLE SCLEROSIS [None]
